FAERS Safety Report 19077650 (Version 1)
Quarter: 2021Q1

REPORT INFORMATION
  Report Type: Spontaneous
  Country: US (occurrence: US)
  Receive Date: 20210331
  Receipt Date: 20210331
  Transmission Date: 20210420
  Serious: Yes (Other)
  Sender: FDA-Public Use
  Company Number: US-BAUSCH-BL-2021-009623

PATIENT
  Age: 75 Year
  Sex: Female

DRUGS (2)
  1. LACRISERT [Suspect]
     Active Substance: HYDROXYPROPYL CELLULOSE
     Indication: DRY EYE
     Dosage: 1 INSERT IN BOTH EYES ONCE DAILY
     Route: 047
     Dates: start: 1985
  2. LACRISERT [Suspect]
     Active Substance: HYDROXYPROPYL CELLULOSE
     Dosage: STARTED AT LEAST 3 YEARS AGO. ?1 INSERT IN BOTH EYES 3 TIMES DAILY
     Route: 047
     Dates: end: 202101

REACTIONS (4)
  - Inappropriate schedule of product administration [Unknown]
  - Condition aggravated [Unknown]
  - Sjogren^s syndrome [Unknown]
  - Therapy interrupted [Unknown]

NARRATIVE: CASE EVENT DATE: 202101
